FAERS Safety Report 4833663-7 (Version None)
Quarter: 2005Q4

REPORT INFORMATION
  Report Type: 
  Country: None (occurrence: None)
  Receive Date: 20051116
  Receipt Date: 20051103
  Transmission Date: 20060501
  Serious: Yes (Hospitalization)
  Sender: FDA-Public Use
  Company Number: 2005-09-0255

PATIENT
  Age: 43 Year
  Sex: Male
  Weight: 74.8435 kg

DRUGS (5)
  1. BETAMETHASONE SODIUM PHOSPHATE [Suspect]
     Indication: MULTIPLE ALLERGIES
     Dosage: Q 6 MONTHS INTRAMUSCULAR
     Route: 030
     Dates: start: 20000601
  2. PREVACID [Concomitant]
  3. ZOCOR [Concomitant]
  4. ZOLOFT [Concomitant]
  5. RANITIDINE [Concomitant]

REACTIONS (3)
  - MUSCLE FATIGUE [None]
  - MUSCULAR WEAKNESS [None]
  - PARALYSIS [None]
